FAERS Safety Report 10065321 (Version 1)
Quarter: 2014Q1

REPORT INFORMATION
  Report Type: Spontaneous
  Country: US (occurrence: None)
  Receive Date: 20140328
  Receipt Date: 20140328
  Transmission Date: 20141002
  Serious: No
  Sender: FDA-Public Use
  Company Number: 1000052732

PATIENT
  Age: 75 Year
  Sex: Female

DRUGS (2)
  1. LINZESS [Suspect]
     Indication: CONSTIPATION
     Dosage: 145 MCG ( 145 MCG, 1 IN 1 D), ORAL
     Route: 048
     Dates: start: 20140107
  2. SENNA S (COLOXYL WITH SENNA) (COLOXYL WITH SENNA) [Concomitant]

REACTIONS (1)
  - Diarrhoea [None]
